FAERS Safety Report 6418821-2 (Version None)
Quarter: 2009Q4

REPORT INFORMATION
  Report Type: 
  Country: None (occurrence: None)
  Receive Date: 20091028
  Receipt Date: 20091015
  Transmission Date: 20100525
  Serious: Yes (Hospitalization)
  Sender: FDA-Public Use
  Company Number: PHHY2009FR44721

PATIENT
  Sex: Male

DRUGS (9)
  1. ZOMETA [Suspect]
     Dosage: 1 DF, UNK
     Dates: start: 20090831
  2. ROCEPHIN [Suspect]
     Dosage: 1 G DAILY
     Dates: start: 20090823, end: 20090914
  3. ESOMEPRAZOLE MAGNESIUM [Suspect]
     Dosage: UNK
     Dates: start: 20090823, end: 20090913
  4. AMPHOTERICIN B [Suspect]
     Dosage: UNK
     Dates: start: 20090827, end: 20090913
  5. ANDROCUR [Suspect]
     Dosage: 100 MG, TID
     Dates: start: 20090901, end: 20090910
  6. DISTILBENE [Concomitant]
     Dosage: UNK
     Dates: start: 20090911
  7. LOVENOX [Concomitant]
     Dosage: UNK
  8. GAVISCON [Concomitant]
     Dosage: UNK
  9. EDUCTYL [Concomitant]
     Dosage: UNK

REACTIONS (3)
  - CONDITION AGGRAVATED [None]
  - CYTOLYTIC HEPATITIS [None]
  - HEPATIC STEATOSIS [None]
